FAERS Safety Report 14077689 (Version 1)
Quarter: 2017Q4

REPORT INFORMATION
  Report Type: Spontaneous
  Country: US (occurrence: US)
  Receive Date: 20171012
  Receipt Date: 20171012
  Transmission Date: 20180321
  Serious: Yes (Hospitalization, Other)
  Sender: FDA-Public Use
  Company Number: US-AMGEN-USASP2017152932

PATIENT
  Age: 59 Year
  Sex: Female

DRUGS (2)
  1. ENBREL [Suspect]
     Active Substance: ETANERCEPT
     Indication: SYSTEMIC LUPUS ERYTHEMATOSUS
     Dosage: 50 MG, QWK
     Route: 065
     Dates: start: 2015, end: 201604
  2. ENBREL [Suspect]
     Active Substance: ETANERCEPT
     Indication: AUTOIMMUNE DISORDER
     Dosage: 50 MG, QWK
     Route: 065
     Dates: start: 201701

REACTIONS (7)
  - Injection site mass [Recovered/Resolved]
  - Incorrect disposal of product [Recovered/Resolved]
  - Memory impairment [Recovered/Resolved]
  - Systemic lupus erythematosus [Recovered/Resolved]
  - Blood pressure abnormal [Recovered/Resolved]
  - Autoimmune disorder [Recovered/Resolved]
  - Off label use [Unknown]

NARRATIVE: CASE EVENT DATE: 2015
